FAERS Safety Report 12676788 (Version 1)
Quarter: 2016Q3

REPORT INFORMATION
  Report Type: Spontaneous
  Country: IQ (occurrence: IQ)
  Receive Date: 20160823
  Receipt Date: 20160823
  Transmission Date: 20161109
  Serious: Yes (Other)
  Sender: FDA-Public Use
  Company Number: IQ-TAKEDA-2016MPI007405

PATIENT
  Age: 62 Year
  Sex: Male
  Weight: 95 kg

DRUGS (7)
  1. VELCADE [Suspect]
     Active Substance: BORTEZOMIB
     Indication: PLASMA CELL MYELOMA
     Dosage: 2.5 MG/M2, UNK
     Route: 065
     Dates: start: 20160419, end: 20160715
  2. DEXAMETHASONE. [Concomitant]
     Active Substance: DEXAMETHASONE
     Indication: PLASMA CELL MYELOMA
     Dosage: 40 MG, UNK
     Route: 048
     Dates: start: 20160419, end: 20160715
  3. ZOVIRAX [Concomitant]
     Active Substance: ACYCLOVIR
     Indication: INFECTION PROPHYLAXIS
     Dosage: 300 MG, UNK
     Route: 065
     Dates: start: 20160419, end: 20160715
  4. CYCLOPHOSPHAMIDE. [Concomitant]
     Active Substance: CYCLOPHOSPHAMIDE
     Indication: PLASMA CELL MYELOMA
     Dosage: 50 MG, UNK
     Route: 065
     Dates: start: 20160401, end: 20160715
  5. ZOMETA [Concomitant]
     Active Substance: ZOLEDRONIC ACID
     Indication: HYPERCALCAEMIA OF MALIGNANCY
     Dosage: 4 MG, UNK
     Route: 065
     Dates: start: 20160419, end: 20160715
  6. FLUCONAZOLE. [Concomitant]
     Active Substance: FLUCONAZOLE
     Indication: INFECTION PROPHYLAXIS
     Dosage: 150 MG, UNK
     Route: 065
     Dates: start: 20160419, end: 20160715
  7. VELCADE [Suspect]
     Active Substance: BORTEZOMIB
     Dosage: 2.5 MG/M2, UNK
     Route: 065
     Dates: start: 20160809

REACTIONS (1)
  - Meibomian gland dysfunction [Recovered/Resolved]

NARRATIVE: CASE EVENT DATE: 20160715
